FAERS Safety Report 9782950 (Version 2)
Quarter: 2013Q4

REPORT INFORMATION
  Report Type: Spontaneous
  Country: JP (occurrence: JP)
  Receive Date: 20131226
  Receipt Date: 20131226
  Transmission Date: 20140711
  Serious: Yes (Other)
  Sender: FDA-Public Use
  Company Number: PHHY2013JP130797

PATIENT
  Age: 94 Year
  Sex: Female

DRUGS (5)
  1. EXELON PATCH [Suspect]
     Indication: DEMENTIA ALZHEIMER^S TYPE
     Dosage: 4.5 MG, DAILY
     Route: 062
     Dates: start: 20130912, end: 20131003
  2. YOKUKANSAN [Concomitant]
     Indication: DEMENTIA ALZHEIMER^S TYPE
     Dosage: 7.5 G, UNK
     Route: 048
     Dates: start: 20130912
  3. UNDEPRE [Concomitant]
     Dosage: 50 MG, UNK
     Route: 048
     Dates: start: 20121101
  4. DEPAKENE [Concomitant]
     Dosage: 200 MG, UNK
     Route: 048
     Dates: start: 20130815
  5. LUVOX [Concomitant]
     Indication: DEPRESSION
     Dosage: 50 MG, UNK
     Dates: start: 20131004

REACTIONS (6)
  - Self injurious behaviour [Recovered/Resolved]
  - Head banging [Unknown]
  - Trichotillomania [Unknown]
  - Haemorrhage [Unknown]
  - Screaming [Unknown]
  - Abnormal behaviour [Unknown]
